FAERS Safety Report 6043038-3 (Version None)
Quarter: 2009Q1

REPORT INFORMATION
  Report Type: 
  Country: None (occurrence: None)
  Receive Date: 20090119
  Receipt Date: 20081125
  Transmission Date: 20090719
  Serious: Yes (Other)
  Sender: FDA-Public Use
  Company Number: PHHY2008DE29831

PATIENT
  Sex: Female
  Weight: 65 kg

DRUGS (1)
  1. IMMUNOSPORIN [Suspect]
     Indication: RHEUMATOID ARTHRITIS
     Dosage: 150MG/DAY
     Route: 048
     Dates: start: 20080910, end: 20081001

REACTIONS (3)
  - ABDOMINAL PAIN UPPER [None]
  - HEADACHE [None]
  - HYPERTENSIVE CRISIS [None]
